FAERS Safety Report 9602816 (Version 1)
Quarter: 2013Q4

REPORT INFORMATION
  Report Type: Spontaneous
  Country: US (occurrence: None)
  Receive Date: 20131003
  Receipt Date: 20131003
  Transmission Date: 20140711
  Serious: Yes (Hospitalization)
  Sender: FDA-Public Use
  Company Number: 2013AP008365

PATIENT
  Age: 81 Year
  Sex: Female

DRUGS (6)
  1. BUPROPION HYDROCHLORIDE [Suspect]
     Indication: DEPRESSION
  2. ZOLPIDEM [Concomitant]
  3. DIPHENHYDRAMINE [Concomitant]
  4. VENLAFAXINE [Concomitant]
  5. FLUOXETINE [Concomitant]
  6. LOSARTAN [Concomitant]

REACTIONS (3)
  - Confusional state [None]
  - Mental status changes [None]
  - Muscular weakness [None]
